FAERS Safety Report 6902094-8 (Version None)
Quarter: 2010Q3

REPORT INFORMATION
  Report Type: 
  Country: None (occurrence: None)
  Receive Date: 20100803
  Receipt Date: 20080421
  Transmission Date: 20110219
  Serious: Yes (Other)
  Sender: FDA-Public Use
  Company Number: US-PFIZER INC-2008030571

PATIENT
  Sex: Female
  Weight: 69.4 kg

DRUGS (6)
  1. LYRICA [Suspect]
     Indication: FIBROMYALGIA
     Dates: start: 20080201
  2. AMITIZA [Concomitant]
  3. TYLENOL PM [Concomitant]
  4. VITAMIN TAB [Concomitant]
  5. TRAMADOL HYDROCHLORIDE [Concomitant]
  6. ACETAMINOPHEN AND HYDROCODONE BITARTRATE [Concomitant]

REACTIONS (1)
  - PAIN [None]
